FAERS Safety Report 11001807 (Version 3)
Quarter: 2015Q2

REPORT INFORMATION
  Report Type: Spontaneous
  Country: HU (occurrence: HU)
  Receive Date: 20150408
  Receipt Date: 20150421
  Transmission Date: 20150821
  Serious: Yes (Death)
  Sender: FDA-Public Use
  Company Number: HU-PFIZER INC-2015080745

PATIENT
  Age: 67 Year
  Sex: Female

DRUGS (17)
  1. MEDROL [Suspect]
     Active Substance: METHYLPREDNISOLONE
     Dosage: 2-4MG DOSE, NOT CONSTANTLY
  2. SYNCUMAR [Concomitant]
     Active Substance: ACENOCOUMAROL
     Dosage: UNK
  3. MEDROL [Suspect]
     Active Substance: METHYLPREDNISOLONE
     Dosage: 2-4MG DAILY
  4. INZULIN [Concomitant]
     Dosage: UNK
  5. TRITACE [Concomitant]
     Active Substance: RAMIPRIL
     Dosage: UNK
  6. PANTOPRAZOLE SODIUM. [Concomitant]
     Active Substance: PANTOPRAZOLE SODIUM
     Dosage: UNK
  7. KALDYUM [Concomitant]
     Active Substance: POTASSIUM CHLORIDE
     Dosage: UNK
  8. MEDROL [Suspect]
     Active Substance: METHYLPREDNISOLONE
     Dosage: INCREASED DOSE TEMPORARILY
     Dates: start: 201310
  9. NARVA SR [Concomitant]
     Dosage: UNK
  10. FUROSEMID [Concomitant]
     Active Substance: FUROSEMIDE
     Dosage: UNK
  11. NEBIVOLOL [Concomitant]
     Active Substance: NEBIVOLOL
     Dosage: UNK
  12. TENOX /00972403/ [Concomitant]
     Dosage: UNK
  13. LEGALON [Concomitant]
     Active Substance: MILK THISTLE
     Dosage: UNK
  14. MILURIT [Concomitant]
     Active Substance: ALLOPURINOL
     Dosage: UNK
  15. QUAMATEL [Concomitant]
     Dosage: UNK
  16. ENBREL [Suspect]
     Active Substance: ETANERCEPT
     Indication: PSORIATIC ARTHROPATHY
     Dosage: 1 AMPOULE, WEEKLY TO HER ABDOMEN, THIGH
     Route: 058
     Dates: start: 20130325
  17. MEDROL [Suspect]
     Active Substance: METHYLPREDNISOLONE
     Indication: POLYARTHRITIS
     Dosage: PERIODICALLY
     Dates: start: 2009

REACTIONS (4)
  - Arteriosclerosis [Fatal]
  - Pulmonary embolism [Fatal]
  - Venous thrombosis limb [Fatal]
  - Gangrene [Fatal]

NARRATIVE: CASE EVENT DATE: 201501
